FAERS Safety Report 15016822 (Version 1)
Quarter: 2018Q2

REPORT INFORMATION
  Report Type: Spontaneous
  Country: US (occurrence: US)
  Receive Date: 20180615
  Receipt Date: 20180615
  Transmission Date: 20180711
  Serious: Yes (Other)
  Sender: FDA-Public Use
  Company Number: US-PFIZER INC-2018241500

PATIENT
  Age: 50 Year
  Sex: Female

DRUGS (1)
  1. LATANOPROST. [Suspect]
     Active Substance: LATANOPROST
     Dosage: UNK

REACTIONS (6)
  - Retinal tear [Unknown]
  - Eye disorder [Unknown]
  - Eye irritation [Unknown]
  - Vision blurred [Unknown]
  - Glaucoma [Unknown]
  - Eye pain [Unknown]
